FAERS Safety Report 7222769-3 (Version None)
Quarter: 2011Q1

REPORT INFORMATION
  Report Type: 
  Country: None (occurrence: None)
  Receive Date: 20110108
  Receipt Date: 20110108
  Transmission Date: 20110831
  Serious: No
  Sender: FDA-Public Use
  Company Number: None

PATIENT
  Sex: Female
  Weight: 61.2356 kg

DRUGS (1)
  1. PEGASYS [Suspect]

REACTIONS (2)
  - RASH [None]
  - INFLUENZA LIKE ILLNESS [None]
